FAERS Safety Report 25196256 (Version 1)
Quarter: 2025Q2

REPORT INFORMATION
  Report Type: Spontaneous
  Country: JP (occurrence: JP)
  Receive Date: 20250415
  Receipt Date: 20250415
  Transmission Date: 20250717
  Serious: Yes (Hospitalization)
  Sender: MERCK SHARP AND DOHME
  Company Number: JP-009507513-2275314

PATIENT
  Age: 80 Year
  Sex: Male

DRUGS (1)
  1. KEYTRUDA [Suspect]
     Active Substance: PEMBROLIZUMAB
     Indication: Renal cell carcinoma stage III
     Route: 041
     Dates: start: 202403, end: 202503

REACTIONS (1)
  - Meningitis bacterial [Recovering/Resolving]

NARRATIVE: CASE EVENT DATE: 20250301
